FAERS Safety Report 6179730-X (Version None)
Quarter: 2009Q2

REPORT INFORMATION
  Report Type: 
  Country: None (occurrence: None)
  Receive Date: 20090505
  Receipt Date: 20090430
  Transmission Date: 20091009
  Serious: Yes (Hospitalization)
  Sender: FDA-Public Use
  Company Number: US-ALLERGAN-0906066US

PATIENT
  Sex: Female

DRUGS (10)
  1. BLEPH-10 SOLUTION [Suspect]
     Indication: EYE INFECTION
     Dosage: 1 GTT, QID
     Route: 047
     Dates: start: 20090422, end: 20090425
  2. BLEPH-10 SOLUTION [Suspect]
     Dosage: 1 GTT, TID
     Route: 047
     Dates: start: 20090426, end: 20090426
  3. BLEPH-10 SOLUTION [Suspect]
     Dosage: 1 GTT, BID
     Route: 047
     Dates: start: 20090427, end: 20090427
  4. BLEPH-10 SOLUTION [Suspect]
     Route: 047
     Dates: start: 20090430
  5. LOZOL [Concomitant]
     Indication: HYPERTENSION
     Dosage: 1.25 MG, QD
     Route: 048
  6. ASPIRIN [Concomitant]
     Dosage: 81 MG, UNK
     Route: 048
  7. FOLIC ACID [Concomitant]
     Dosage: 400 UG, QD
  8. CALCIUM [Concomitant]
     Dosage: 500 MG, BID
  9. ZOCOR [Concomitant]
     Indication: BLOOD CHOLESTEROL INCREASED
     Dosage: 20 MG, QD
  10. BENICAR [Concomitant]
     Indication: HYPERTENSION

REACTIONS (4)
  - COUGH [None]
  - DYSPNOEA [None]
  - EYELID OEDEMA [None]
  - HYPERHIDROSIS [None]
